FAERS Safety Report 5523264-X (Version None)
Quarter: 2007Q4

REPORT INFORMATION
  Report Type: 
  Country: None (occurrence: None)
  Receive Date: 20071116
  Receipt Date: 20071102
  Transmission Date: 20080405
  Serious: Yes (Other)
  Sender: FDA-Public Use
  Company Number: SPV1-2007-04677

PATIENT
  Age: 75 Year
  Sex: Female

DRUGS (6)
  1. PENTASA [Suspect]
     Indication: COLITIS ULCERATIVE
     Dosage: 750 MG, 3X/DAY:TID, ORAL
     Route: 048
     Dates: start: 20070925, end: 20071002
  2. LANSOPRAZOLE [Concomitant]
  3. METILDIGOXIN (METILDIGOXIN) UNKNOWN [Concomitant]
  4. NIFEDIPINE [Concomitant]
  5. PILSICAINIDE HYDROCHLORIDE (PILSICAINIDE HYDROCHLORIDE) UNKNOWN [Concomitant]
  6. PREDNISOLONE [Concomitant]

REACTIONS (1)
  - INTERSTITIAL LUNG DISEASE [None]
